FAERS Safety Report 24746876 (Version 1)
Quarter: 2024Q4

REPORT INFORMATION
  Report Type: Spontaneous
  Country: US (occurrence: US)
  Receive Date: 20241218
  Receipt Date: 20241218
  Transmission Date: 20250115
  Serious: No
  Sender: RECKITT BENCKISER
  Company Number: US-PROD-AS2-212756134-RB-082922-2024

PATIENT
  Age: 68 Year
  Sex: Female
  Weight: 50 kg

DRUGS (1)
  1. DELSYM COUGH [Suspect]
     Active Substance: DEXTROMETHORPHAN HYDROBROMIDE
     Indication: Cough
     Dosage: TOOK 10 ML, SINGLE
     Route: 048
     Dates: start: 20240120

REACTIONS (5)
  - Rash [Not Recovered/Not Resolved]
  - Vision blurred [Recovered/Resolved]
  - Heart rate increased [Recovered/Resolved]
  - Road traffic accident [Not Recovered/Not Resolved]
  - Drug ineffective [Not Recovered/Not Resolved]

NARRATIVE: CASE EVENT DATE: 20240120
